FAERS Safety Report 5104744-8 (Version None)
Quarter: 2006Q3

REPORT INFORMATION
  Report Type: 
  Country: None (occurrence: None)
  Receive Date: 20060914
  Receipt Date: 20060911
  Transmission Date: 20061208
  Serious: Yes (Other)
  Sender: FDA-Public Use
  Company Number: PT-MERCK-0609PRT00002

PATIENT
  Sex: Female
  Weight: 73 kg

DRUGS (2)
  1. VYTORIN [Suspect]
     Indication: HYPERCHOLESTEROLAEMIA
     Route: 065
  2. VYTORIN [Suspect]
     Route: 048

REACTIONS (2)
  - ARTHRALGIA [None]
  - GAIT DISTURBANCE [None]
